FAERS Safety Report 8747885 (Version 2)
Quarter: 2012Q4

REPORT INFORMATION
  Report Type: 
  Country: DE (occurrence: DE)
  Receive Date: 20120827
  Receipt Date: 20121126
  Transmission Date: 20130627
  Serious: Yes (Other)
  Sender: FDA-Public Use
  Company Number: DE-GLAXOSMITHKLINE-D0076824A

PATIENT
  Age: 60 None
  Sex: Female
  Weight: 71 kg

DRUGS (4)
  1. REQUIP-MODUTAB [Suspect]
     Indication: PARKINSON^S DISEASE
     Dosage: 8MG per day
     Route: 048
     Dates: start: 20120622, end: 20120630
  2. LEVODOPA/BENSERAZIDE [Concomitant]
     Indication: PARKINSON^S DISEASE
     Dosage: 500MG per day
     Route: 065
     Dates: start: 20120620
  3. MOTILIUM [Concomitant]
     Indication: IMPAIRED GASTRIC EMPTYING
     Dosage: 30MG per day
     Route: 065
     Dates: start: 20120626
  4. AMANTADINE [Concomitant]
     Dosage: 300MG per day
     Route: 065
     Dates: start: 20120621, end: 20120630

REACTIONS (4)
  - Psychotic disorder [Recovered/Resolved]
  - Disorientation [Recovered/Resolved]
  - Hallucination [Recovered/Resolved]
  - Overdose [Unknown]
